FAERS Safety Report 9268430 (Version 2)
Quarter: 2013Q2

REPORT INFORMATION
  Report Type: Spontaneous
  Country: US (occurrence: US)
  Receive Date: 20130502
  Receipt Date: 20130523
  Transmission Date: 20140414
  Serious: Yes (Hospitalization)
  Sender: FDA-Public Use
  Company Number: US-B.I. PHARMACEUTICALS,INC./RIDGEFIELD-2013-BI-12105BP

PATIENT
  Age: 66 Year
  Sex: Female
  Weight: 97.07 kg

DRUGS (13)
  1. AGGRENOX [Suspect]
     Indication: CEREBROVASCULAR ACCIDENT PROPHYLAXIS
     Dosage: 25 MG / 200 MG
     Route: 048
     Dates: start: 201107
  2. AGGRENOX [Suspect]
     Indication: CORONARY ARTERY DISEASE
  3. SPIRIVA [Suspect]
     Indication: CHRONIC OBSTRUCTIVE PULMONARY DISEASE
     Dosage: 18 MCG
     Route: 055
     Dates: start: 201204
  4. LISINOPRIL [Concomitant]
     Dosage: (TABLET) STRENGTH: 5MG; DAILY DOSE: 5MG
     Route: 048
  5. VITAMIN D [Concomitant]
     Dosage: (CAPSULE)
     Route: 048
  6. GLIPIZIDE [Concomitant]
     Dosage: (TABLET) STRENGTH: 2.5MG; DAILY DOSE: 5MG
     Route: 048
  7. AMLODIPINE [Concomitant]
     Dosage: 10 MG
     Route: 048
  8. CRESTOR [Concomitant]
     Dosage: 10 MG
     Route: 048
  9. GEMFIBROZIL [Concomitant]
     Dosage: 1200 MG
     Route: 048
  10. BAYER ASPIRIN [Concomitant]
     Dosage: 325 MG
     Route: 048
     Dates: start: 201304
  11. METOPROLOL [Concomitant]
     Dosage: 150 MG
     Route: 048
  12. ISOSORBIDE MONO ER [Concomitant]
     Dosage: 120 MG
     Route: 048
  13. MULTIVITAMIN [Concomitant]

REACTIONS (2)
  - Carotid artery occlusion [Recovered/Resolved]
  - Aortic aneurysm [Not Recovered/Not Resolved]
